FAERS Safety Report 8074907-0 (Version None)
Quarter: 2012Q1

REPORT INFORMATION
  Report Type: 
  Country: None (occurrence: None)
  Receive Date: 20120126
  Receipt Date: 20120112
  Transmission Date: 20120608
  Serious: Yes (Other)
  Sender: FDA-Public Use
  Company Number: ES-AMGEN-ESPCT2012003254

PATIENT
  Age: 61 Year
  Sex: Female
  Weight: 79 kg

DRUGS (6)
  1. VENLAFAXINE HCL [Concomitant]
     Indication: DEPRESSION
     Dosage: 150 MG AT BREAKFAST AND 75 MG AT DINNER
     Route: 048
  2. ENBREL [Suspect]
     Indication: PSORIATIC ARTHROPATHY
     Dosage: 50 MG, WEEKLY
     Route: 058
     Dates: start: 20110101
  3. ALPRAZOLAM [Concomitant]
     Indication: DEPRESSION
     Dosage: 1 MG, 1X/DAY
     Route: 048
  4. ESCITALOPRAM OXALATE [Concomitant]
     Indication: DEPRESSION
     Dosage: UNK
     Route: 048
  5. ACETAMINOPHEN [Concomitant]
     Indication: PAIN
     Dosage: UNK
     Route: 048
  6. ZOLPIDEM [Concomitant]
     Indication: DEPRESSION
     Dosage: UNK
     Route: 048

REACTIONS (3)
  - ARTHRALGIA [None]
  - PARAESTHESIA [None]
  - DEPRESSION [None]
